FAERS Safety Report 8555686-7 (Version None)
Quarter: 2012Q3

REPORT INFORMATION
  Report Type: 
  Country: None (occurrence: None)
  Receive Date: 20120801
  Receipt Date: 20120720
  Transmission Date: 20120928
  Serious: Yes (Other)
  Sender: FDA-Public Use
  Company Number: AR-AMGEN-ARGSP2011054882

PATIENT
  Age: 75 Year
  Sex: Female

DRUGS (5)
  1. ENBREL [Suspect]
     Indication: RHEUMATOID ARTHRITIS
     Dosage: 50 MG, WEEKLY
     Route: 058
     Dates: start: 20100630, end: 20110401
  2. FOLIC ACID [Concomitant]
     Dosage: UNK
     Route: 048
  3. METHOTREXATE [Concomitant]
     Dosage: UNK
     Route: 048
  4. CALCIUM [Concomitant]
     Dosage: UNK
     Route: 048
  5. ENALAPRIL MALEATE [Concomitant]
     Dosage: UNK
     Route: 048

REACTIONS (2)
  - SKIN ULCER [None]
  - HERPES VIRUS INFECTION [None]
